FAERS Safety Report 9238786 (Version 1)
Quarter: 2013Q1

REPORT INFORMATION
  Report Type: Spontaneous
  Country: US (occurrence: None)
  Receive Date: 20121107
  Receipt Date: 20121107
  Transmission Date: 20140127
  Serious: No
  Sender: FDA-Public Use
  Company Number: 2012HGS-003797

PATIENT
  Age: 67 Year
  Sex: Female
  Weight: 84.37 kg

DRUGS (4)
  1. BENLYSTA [Suspect]
     Indication: SYSTEMIC LUPUS ERYTHEMATOSUS
     Dosage: 1 IN 28 D
     Route: 041
     Dates: start: 20120303
  2. ATENOLOL (ATENOLOL) (ATENOLOL) [Concomitant]
  3. LISINOPRIL (LISINOPRIL) (LISINOPRIL) [Concomitant]
  4. HYDROCHLOROTHIAZIDE (HYDROCHLOROTHIAZIDE) (HYDROCHLOROTHIAZIDE) [Concomitant]

REACTIONS (5)
  - Dizziness [None]
  - Rash pruritic [None]
  - Rash erythematous [None]
  - Headache [None]
  - Nausea [None]
